FAERS Safety Report 22082657 (Version 1)
Quarter: 2023Q1

REPORT INFORMATION
  Report Type: Report from Study
  Country: US (occurrence: US)
  Receive Date: 20230310
  Receipt Date: 20230310
  Transmission Date: 20230418
  Serious: Yes (Other)
  Sender: FDA-Public Use
  Company Number: US-ABBVIE-4332145

PATIENT
  Age: 57 Year
  Sex: Male

DRUGS (3)
  1. HUMIRA [Suspect]
     Active Substance: ADALIMUMAB
     Indication: Psoriasis
     Route: 058
     Dates: start: 2018
  2. HUMIRA [Suspect]
     Active Substance: ADALIMUMAB
     Route: 058
  3. HYDROCODONE [Concomitant]
     Active Substance: HYDROCODONE
     Indication: Sciatica

REACTIONS (12)
  - Epilepsy [Unknown]
  - Blastocystis infection [Unknown]
  - Insomnia [Unknown]
  - Arthritis [Unknown]
  - Fatigue [Unknown]
  - Bladder disorder [Unknown]
  - Sciatica [Unknown]
  - Pain [Unknown]
  - Injection site pain [Unknown]
  - Psoriasis [Not Recovered/Not Resolved]
  - Device use error [Unknown]
  - Device breakage [Unknown]

NARRATIVE: CASE EVENT DATE: 20230306
